FAERS Safety Report 7377405-2 (Version None)
Quarter: 2011Q1

REPORT INFORMATION
  Report Type: 
  Country: None (occurrence: None)
  Receive Date: 20110328
  Receipt Date: 20110322
  Transmission Date: 20110831
  Serious: No
  Sender: FDA-Public Use
  Company Number: US-PFIZER INC-2011060720

PATIENT
  Sex: Male
  Weight: 68.027 kg

DRUGS (5)
  1. PREDNISOLONE [Concomitant]
     Indication: ARTERIOSCLEROSIS
     Dosage: 50 MG, 1X/DAY
     Route: 048
     Dates: start: 20100101
  2. LIPITOR [Suspect]
     Dosage: UNK
     Route: 048
     Dates: end: 20110301
  3. ACETAMINOPHEN [Suspect]
     Indication: MYALGIA
     Dosage: 650 MG, 2X/DAY
     Route: 048
  4. LIPITOR [Suspect]
     Indication: SARCOIDOSIS
     Dosage: 10 MG, 1X/DAY
     Route: 048
     Dates: start: 20100101
  5. WARFARIN [Concomitant]
     Indication: ANTICOAGULANT THERAPY
     Dosage: 4MG AND 6MG ALTERNATIVELY DAILY
     Route: 048

REACTIONS (11)
  - MYALGIA [None]
  - BURNING SENSATION [None]
  - INSOMNIA [None]
  - NECK PAIN [None]
  - DRUG INEFFECTIVE [None]
  - RASH [None]
  - BACK PAIN [None]
  - MUSCLE TIGHTNESS [None]
  - PAIN IN EXTREMITY [None]
  - HEADACHE [None]
  - RENAL DISORDER [None]
